FAERS Safety Report 9142567 (Version 2)
Quarter: 2013Q2

REPORT INFORMATION
  Report Type: Spontaneous
  Country: JP (occurrence: JP)
  Receive Date: 20130306
  Receipt Date: 20130416
  Transmission Date: 20140414
  Serious: Yes (Hospitalization, Other)
  Sender: FDA-Public Use
  Company Number: JP-009507513-1303JPN000720

PATIENT
  Age: 48 Year
  Sex: Female
  Weight: 64 kg

DRUGS (12)
  1. JANUVIA TABLETS 50MG [Suspect]
     Indication: DIABETES MELLITUS
     Dosage: 50 MG, QD
     Route: 048
     Dates: start: 20121101, end: 20130213
  2. NEWTOLIDE [Suspect]
     Indication: HYPERTENSION
     Dosage: 12.5 MG, QD
     Route: 048
     Dates: start: 20120205
  3. EXFORGE [Concomitant]
     Indication: HYPERTENSION
     Dosage: 1 DF, QD
     Route: 048
     Dates: start: 20121010
  4. AMLODIN (AMLODIPINE BESYLATE) [Concomitant]
     Indication: HYPERTENSION
     Dosage: 5 MG, QD
     Route: 048
     Dates: start: 20121210
  5. DIOVAN [Concomitant]
     Indication: HYPERTENSION
     Dosage: 80 MG, QD
     Route: 048
     Dates: start: 20121228
  6. DIURETIC (UNSPECIFIED) [Concomitant]
     Dosage: 2.5 MG, BID
     Route: 048
  7. LIVALO [Concomitant]
     Indication: HYPERCHOLESTEROLAEMIA
     Dosage: 1 MG, QD
     Route: 048
     Dates: start: 20080821
  8. BEZAFIBRATE [Concomitant]
     Indication: HYPERCHOLESTEROLAEMIA
     Dosage: 200 MG, BID
     Route: 048
     Dates: start: 19941001
  9. GLUCOBAY [Concomitant]
     Indication: DIABETES MELLITUS
     Dosage: 100 MG, TID
     Route: 048
     Dates: start: 20090217
  10. HUMALOG [Concomitant]
     Indication: DIABETES MELLITUS
     Dosage: 10 (UNDER 1000 UNIT), QD
     Route: 058
     Dates: start: 20051004
  11. HUMALOG MIX [Concomitant]
     Indication: DIABETES MELLITUS
     Dosage: 12 (UNDER 1000 UNIT), BID
     Route: 058
     Dates: start: 20041004
  12. BISOPROLOL FUMARATE [Concomitant]
     Dosage: 2.5 MG, BID
     Route: 048
     Dates: start: 19941001

REACTIONS (3)
  - Diabetic nephropathy [Unknown]
  - Diabetes mellitus [Unknown]
  - Renal failure acute [Not Recovered/Not Resolved]
